FAERS Safety Report 25169080 (Version 1)
Quarter: 2025Q2

REPORT INFORMATION
  Report Type: Other
  Country: MT (occurrence: MT)
  Receive Date: 20250407
  Receipt Date: 20250407
  Transmission Date: 20250717
  Serious: Yes (Other)
  Sender: BIOCON
  Company Number: MT-BIOCON BIOLOGICS LIMITED-BBL2025001804

PATIENT

DRUGS (1)
  1. ADALIMUMAB [Suspect]
     Active Substance: ADALIMUMAB
     Indication: Irritable bowel syndrome
     Dosage: 40 MILLIGRAM, Q2W (INJECTION), 40MG SC ALTERNATE WEEKS
     Route: 058
     Dates: start: 20240501

REACTIONS (6)
  - Irritable bowel syndrome [Recovered/Resolved]
  - Hypersensitivity [Recovered/Resolved]
  - Swelling [Recovered/Resolved]
  - Pruritus [Recovered/Resolved]
  - Erythema [Recovered/Resolved]
  - Injection site reaction [Recovered/Resolved]
